FAERS Safety Report 10588892 (Version 1)
Quarter: 2014Q4

REPORT INFORMATION
  Report Type: Spontaneous
  Country: FR (occurrence: FR)
  Receive Date: 20141117
  Receipt Date: 20141117
  Transmission Date: 20150529
  Serious: Yes (Hospitalization)
  Sender: FDA-Public Use
  Company Number: FR-ROCHE-1491219

PATIENT
  Age: 15 Year
  Sex: Female
  Weight: 60 kg

DRUGS (1)
  1. ROACTEMRA [Suspect]
     Active Substance: TOCILIZUMAB
     Indication: UVEITIS
     Route: 042
     Dates: start: 201403

REACTIONS (2)
  - Fistula [Recovered/Resolved]
  - Subcutaneous abscess [Recovered/Resolved]
